FAERS Safety Report 9331315 (Version 2)
Quarter: 2014Q2

REPORT INFORMATION
  Report Type: Spontaneous
  Country: US (occurrence: US)
  Receive Date: 20130605
  Receipt Date: 20140404
  Transmission Date: 20141212
  Serious: Yes (Hospitalization, Other)
  Sender: FDA-Public Use
  Company Number: US-BAYER-2013-068369

PATIENT
  Age: 37 Year
  Sex: Female
  Weight: 73.92 kg

DRUGS (30)
  1. GIANVI [Suspect]
     Dosage: UNK
     Dates: start: 201011, end: 201106
  2. CLARINEX-D [Concomitant]
     Dosage: 1 EVERY DAY
     Route: 048
  3. CLARINEX-D [Concomitant]
     Dosage: 5-240 MG
     Route: 048
  4. PROPRANOLOL [Concomitant]
     Dosage: 40 MG, BID
     Route: 048
  5. DEXILANT [Concomitant]
     Indication: DYSPEPSIA
     Dosage: 60 MG, BID
     Route: 048
  6. VENLAFAXINE [Concomitant]
     Indication: ANXIETY
     Dosage: 150 MG, UNK
     Route: 048
  7. ZITHROMAX [Concomitant]
     Dosage: 250 MG, UNK
     Route: 048
  8. DIFLUCAN [Concomitant]
     Dosage: 100 MG, UNK
     Route: 048
  9. ANALPRAM-HC [Concomitant]
     Route: 061
  10. AVELOX [Concomitant]
     Dosage: 400 MG, UNK
     Route: 048
  11. OMNICEF [Concomitant]
     Dosage: 300 MG, UNK
     Route: 048
  12. MOBIC [Concomitant]
     Dosage: 15 MG, UNK
     Route: 048
  13. FLEXERIL [Concomitant]
     Dosage: 10 MG, UNK
     Route: 048
  14. CELEBREX [Concomitant]
     Dosage: 200 MG, UNK
     Route: 048
  15. PROMETHAZINE - CODEINE [CITRIC AC,CODEINE,PROMETHAZ,NA+ CITR AC,SU [Concomitant]
     Dosage: 6.25-10MG/5ML
     Route: 048
  16. LOMOTIL [DIPHENOXYLATE HYDROCHLORIDE] [Concomitant]
     Dosage: 2.5-0.025 MG
     Route: 048
  17. PERCOCET [Concomitant]
     Dosage: 5-325 MG
     Route: 048
  18. NYSTATIN [Concomitant]
     Route: 061
  19. CLOBETASOL PROPIONATE [Concomitant]
     Dosage: 0.05 %, UNK
     Route: 048
  20. EFFEXOR XR [Concomitant]
     Dosage: 75 MG, UNK
     Route: 048
  21. PROPRANOLOL HYDROCHLORIDE [Concomitant]
     Dosage: 40 MG, UNK
     Route: 048
  22. TOPAMAX [Concomitant]
     Dosage: 50 MG, UNK
     Route: 048
  23. ACETAMINOPHEN W/CODEINE [Concomitant]
     Indication: PAIN
     Dosage: ONE OR TWO EVERY SIX HOURS AS NEEDED
     Route: 048
  24. LORATADIN [Concomitant]
     Indication: SEASONAL ALLERGY
     Dosage: 1 [TIMES] DAY
     Route: 048
  25. TOPIRAMATE [Concomitant]
     Indication: MIGRAINE
     Dosage: 50 MG, BID
  26. THALITONE [Concomitant]
  27. IBUPROFEN [Concomitant]
  28. EFFEXOR [Concomitant]
  29. NORTRIPTYLINE [Concomitant]
  30. DOXIDAN [DANTRON,DOCUSATE CALCIUM] [Concomitant]

REACTIONS (11)
  - Deep vein thrombosis [None]
  - Thrombophlebitis superficial [None]
  - Thrombophlebitis superficial [None]
  - Deep vein thrombosis [None]
  - Pulmonary embolism [None]
  - Injury [None]
  - Pain [None]
  - Peripheral swelling [None]
  - Erythema [None]
  - Pain in extremity [None]
  - Dyspnoea [None]
